FAERS Safety Report 6273809-X (Version None)
Quarter: 2009Q3

REPORT INFORMATION
  Report Type: 
  Country: None (occurrence: None)
  Receive Date: 20090720
  Receipt Date: 20090710
  Transmission Date: 20100115
  Serious: Yes (Other)
  Sender: FDA-Public Use
  Company Number: B0584658A

PATIENT
  Age: 50 Year
  Sex: Male

DRUGS (2)
  1. ZEFFIX [Suspect]
     Indication: DRUG USE FOR UNKNOWN INDICATION
     Route: 065
     Dates: start: 20020101
  2. HEPSERA [Suspect]
     Indication: DRUG USE FOR UNKNOWN INDICATION
     Route: 065
     Dates: start: 20040101

REACTIONS (2)
  - DRUG TOLERANCE [None]
  - HEPATIC ENZYME INCREASED [None]
